FAERS Safety Report 14918372 (Version 1)
Quarter: 2018Q2

REPORT INFORMATION
  Report Type: Report from Study
  Country: GT (occurrence: GT)
  Receive Date: 20180521
  Receipt Date: 20180521
  Transmission Date: 20180711
  Serious: Yes (Other)
  Sender: FDA-Public Use
  Company Number: PHHY2018GT004515

PATIENT
  Age: 48 Year
  Sex: Male

DRUGS (1)
  1. EXFORGE [Suspect]
     Active Substance: AMLODIPINE BESYLATE\VALSARTAN
     Indication: PRODUCT USED FOR UNKNOWN INDICATION
     Dosage: (AMLODIPINE 10 MG, VALSARTAN 160 MG; AMLODIPINE 5 MG, VALSARTAN 320 MG), QD
     Route: 065

REACTIONS (2)
  - Incorrect dosage administered [Unknown]
  - Diabetes mellitus [Unknown]
